FAERS Safety Report 7331406-9 (Version None)
Quarter: 2011Q1

REPORT INFORMATION
  Report Type: 
  Country: None (occurrence: None)
  Receive Date: 20110304
  Receipt Date: 20110225
  Transmission Date: 20110831
  Serious: Yes (Hospitalization)
  Sender: FDA-Public Use
  Company Number: US-ALEXION-A201100232

PATIENT
  Sex: Female

DRUGS (1)
  1. SOLIRIS [Suspect]
     Indication: PAROXYSMAL NOCTURNAL HAEMOGLOBINURIA
     Dosage: 1200 MG, UNK
     Route: 042

REACTIONS (11)
  - DYSPNOEA [None]
  - ASTHENIA [None]
  - DYSPHAGIA [None]
  - TRANSFUSION [None]
  - IRON OVERLOAD [None]
  - ARTHRALGIA [None]
  - HAEMOLYSIS [None]
  - FATIGUE [None]
  - HAEMOGLOBINURIA [None]
  - CHONDROCALCINOSIS PYROPHOSPHATE [None]
  - JOINT SWELLING [None]
